FAERS Safety Report 12284407 (Version 1)
Quarter: 2016Q2

REPORT INFORMATION
  Report Type: Report from Study
  Country: NL (occurrence: NL)
  Receive Date: 20160420
  Receipt Date: 20160420
  Transmission Date: 20160815
  Serious: Yes (Death, Other)
  Sender: FDA-Public Use
  Company Number: NL-AMGEN-NLDSL2016046655

PATIENT
  Age: 65 Year
  Sex: Male

DRUGS (3)
  1. MITOMYCINE [Concomitant]
     Active Substance: MITOMYCIN
  2. XGEVA [Suspect]
     Active Substance: DENOSUMAB
     Indication: PRODUCT USED FOR UNKNOWN INDICATION
     Dosage: 120 MG, Q4WK
     Route: 058
     Dates: start: 20150812
  3. CISPLATINUM [Concomitant]
     Active Substance: CISPLATIN

REACTIONS (11)
  - Pneumococcal sepsis [Unknown]
  - Upper respiratory tract infection [Unknown]
  - Pneumonia [Unknown]
  - Magnesium deficiency [Unknown]
  - Constipation [Unknown]
  - Death [Fatal]
  - Chronic obstructive pulmonary disease [Unknown]
  - Sepsis [Unknown]
  - Lumbar vertebral fracture [Unknown]
  - Hypokalaemia [Unknown]
  - Meniscus injury [Unknown]

NARRATIVE: CASE EVENT DATE: 20150819
